FAERS Safety Report 5980678-1 (Version None)
Quarter: 2008Q4

REPORT INFORMATION
  Report Type: 
  Country: None (occurrence: None)
  Receive Date: 20081205
  Receipt Date: 20080310
  Transmission Date: 20090506
  Serious: No
  Sender: FDA-Public Use
  Company Number: A0714184A

PATIENT
  Age: 55 Year
  Sex: Male

DRUGS (1)
  1. COMMIT [Suspect]
     Dates: start: 20060531

REACTIONS (6)
  - FATIGUE [None]
  - IMPAIRED WORK ABILITY [None]
  - INTENTIONAL DRUG MISUSE [None]
  - NERVOUSNESS [None]
  - PERFORMANCE STATUS DECREASED [None]
  - SOMNOLENCE [None]
